FAERS Safety Report 4862094-9 (Version None)
Quarter: 2005Q4

REPORT INFORMATION
  Report Type: 
  Country: None (occurrence: None)
  Receive Date: 20051221
  Receipt Date: 20051114
  Transmission Date: 20060501
  Serious: Yes (Other)
  Sender: FDA-Public Use
  Company Number: JP-BOEHRINGER INGELHEIM PHARMACEUTICALS, INC.-2005-DE-04959GD

PATIENT
  Age: 52 Year
  Sex: Male

DRUGS (9)
  1. MELOXICAM [Suspect]
     Indication: RHEUMATOID ARTHRITIS
  2. LOXOPROFEN [Suspect]
     Indication: ARTHRALGIA
  3. GERSON THERAPY [Suspect]
     Indication: HODGKIN'S DISEASE
     Dosage: 2 L FRESHLY PREPARED JUICES FROM CARROT (4-5 KG) AND APPLE (200-300 G) EVERYDAY
     Route: 048
  4. SULFASALAZINE [Concomitant]
  5. FAMOTIDINE [Concomitant]
  6. BENZBROMARONE [Concomitant]
  7. ALFACALCIDOL [Concomitant]
  8. PREDNISOLONE [Concomitant]
     Dosage: LOW-DOSE
  9. CHEMOTHERAPY [Concomitant]
     Indication: HODGKIN'S DISEASE
     Dosage: HIGH-DOSE

REACTIONS (1)
  - HYPERKALAEMIA [None]
